FAERS Safety Report 5545636-X (Version None)
Quarter: 2007Q4

REPORT INFORMATION
  Report Type: 
  Country: None (occurrence: None)
  Receive Date: 20071211
  Receipt Date: 20060313
  Transmission Date: 20080405
  Serious: Yes (Life-Threatening)
  Sender: FDA-Public Use
  Company Number: US-AVENTIS-200612352US

PATIENT
  Age: 43 Year
  Sex: Female

DRUGS (6)
  1. DESIPRAMINE HCL [Suspect]
     Dosage: DOSE: UNKNOWN
  2. OLANZAPINE [Suspect]
     Dosage: DOSE: UNKNOWN
  3. LITHIUM CARBONATE [Suspect]
     Dosage: DOSE: UNKNOWN
  4. VENLAFAXINE HCL [Suspect]
     Dosage: DOSE: UNKNOWN
  5. ZIPRASIDONE HCL [Suspect]
     Dosage: DOSE: UNKNOWN
  6. ZOLPIDEM TARTRATE [Suspect]
     Dosage: DOSE: UNKNOWN

REACTIONS (1)
  - OVERDOSE [None]
